FAERS Safety Report 5302290-X (Version None)
Quarter: 2007Q2

REPORT INFORMATION
  Report Type: 
  Country: None (occurrence: None)
  Receive Date: 20070412
  Receipt Date: 20070403
  Transmission Date: 20071010
  Serious: Yes (Hospitalization)
  Sender: FDA-Public Use
  Company Number: 2007-01732

PATIENT
  Age: 64 Year
  Sex: Male

DRUGS (6)
  1. FENTANYL CITRATE [Suspect]
     Indication: CANCER PAIN
     Dosage: SEE IMAGE
     Route: 062
  2. FENTANYL CITRATE [Suspect]
     Indication: COLON CANCER
     Dosage: SEE IMAGE
     Route: 062
  3. RIFAMPICIN [Suspect]
     Indication: PULMONARY TUBERCULOSIS
     Dosage: 450 MG, DAILY X 3 MONTHS, ORAL
     Route: 048
  4. LOXOPROFEN (LOXOPROFEN) [Concomitant]
  5. IZONIAZID [Concomitant]
  6. ETHAMBUTOL HYDROCHLORIDE [Concomitant]

REACTIONS (2)
  - DRUG INEFFECTIVE [None]
  - DRUG INTERACTION [None]
